FAERS Safety Report 6375618-X (Version None)
Quarter: 2009Q3

REPORT INFORMATION
  Report Type: 
  Country: None (occurrence: None)
  Receive Date: 20090924
  Receipt Date: 20090917
  Transmission Date: 20100115
  Serious: Yes (Hospitalization, Other)
  Sender: FDA-Public Use
  Company Number: GB-AVENTIS-200920565GDDC

PATIENT
  Age: 61 Year
  Sex: Male
  Weight: 90.9 kg

DRUGS (9)
  1. DOCETAXEL [Suspect]
     Route: 042
     Dates: start: 20090811, end: 20090908
  2. ZOLEDRONIC ACID [Suspect]
     Route: 042
     Dates: start: 20090811, end: 20090908
  3. HORMONES AND RELATED AGENTS [Suspect]
     Dates: start: 20090618, end: 20090801
  4. ASPIRIN [Concomitant]
     Route: 048
     Dates: start: 20070910
  5. GLICLAZIDE [Concomitant]
     Route: 048
     Dates: start: 20090901
  6. LACIDIPINE [Concomitant]
     Route: 048
     Dates: start: 20090210
  7. METFORMIN [Concomitant]
     Route: 048
     Dates: start: 20090714
  8. RAMIPRIL [Concomitant]
     Dates: start: 20070731
  9. SIMVASTATIN [Concomitant]
     Dates: start: 20070731

REACTIONS (1)
  - DIABETES MELLITUS [None]
